FAERS Safety Report 11740044 (Version 2)
Quarter: 2015Q4

REPORT INFORMATION
  Report Type: Spontaneous
  Country: US (occurrence: US)
  Receive Date: 20151110
  Receipt Date: 20151120
  Transmission Date: 20160304
  Serious: No
  Sender: FDA-Public Use
  Company Number: US-ELI_LILLY_AND_COMPANY-US201206005684

PATIENT
  Sex: Female

DRUGS (1)
  1. FORTEO [Suspect]
     Active Substance: TERIPARATIDE

REACTIONS (5)
  - Eye infection [Not Recovered/Not Resolved]
  - Macular degeneration [Unknown]
  - Cataract [Unknown]
  - Eye pain [Unknown]
  - Back pain [Not Recovered/Not Resolved]
